FAERS Safety Report 7337882-X (Version None)
Quarter: 2011Q1

REPORT INFORMATION
  Report Type: 
  Country: None (occurrence: None)
  Receive Date: 20110308
  Receipt Date: 20110228
  Transmission Date: 20110831
  Serious: Yes (Other)
  Sender: FDA-Public Use
  Company Number: US-ROCHE-763093

PATIENT
  Age: 24 Month
  Sex: Female

DRUGS (1)
  1. TAMIFLU [Suspect]
     Route: 048

REACTIONS (4)
  - RESTLESSNESS [None]
  - ABNORMAL BEHAVIOUR [None]
  - DELIRIUM [None]
  - AGITATION [None]
